FAERS Safety Report 6081135-7 (Version None)
Quarter: 2009Q1

REPORT INFORMATION
  Report Type: 
  Country: None (occurrence: None)
  Receive Date: 20090213
  Receipt Date: 20090202
  Transmission Date: 20090719
  Serious: Yes (Other)
  Sender: FDA-Public Use
  Company Number: 2009AP000469

PATIENT
  Sex: Male

DRUGS (7)
  1. ISOSORBIDE DINITRATE [Suspect]
     Dosage: 20 MG; PO
     Route: 048
  2. ATENOLOL [Suspect]
     Dosage: 100 MG; PO, 100 MG; TAB; PO
     Route: 048
  3. SIMVASTATIN [Suspect]
     Dosage: 40 MG; PO, 40 MG; TAB; PO
     Route: 048
  4. AMLODIPINE BESYLATE [Suspect]
     Dosage: 10 MG; PO, 10 MG; TAB; PO
     Route: 048
  5. CAPTOPRIL [Suspect]
     Dosage: 25 MG; PO, 25 MG; TAB; PO
     Route: 048
  6. CARBASALATE CALCIUM (CARBASALATE CALCIUM) [Suspect]
     Dosage: 100 MG; PO
     Route: 048
  7. CLOPIDOGREL [Concomitant]

REACTIONS (2)
  - DISEASE RECURRENCE [None]
  - GLAUCOMA [None]
